FAERS Safety Report 4990630-0 (Version None)
Quarter: 2006Q2

REPORT INFORMATION
  Report Type: 
  Country: None (occurrence: None)
  Receive Date: 20060427
  Receipt Date: 20060412
  Transmission Date: 20061013
  Serious: Yes (Other)
  Sender: FDA-Public Use
  Company Number: 2006BH007940

PATIENT
  Age: 64 Year
  Sex: Male
  Weight: 106 kg

DRUGS (14)
  1. VANCOMYCIN HCL [Suspect]
     Indication: OSTEOMYELITIS
  2. ASPIRIN [Concomitant]
  3. ATENOLOL [Concomitant]
  4. DILTIAZEM HCL [Concomitant]
  5. ................ [Concomitant]
  6. SIMVASTATIN [Concomitant]
  7. RANITIDINE [Concomitant]
  8. CITALOPRAM HYDROBROMIDE [Concomitant]
  9. LORAZEPAM [Concomitant]
  10. TRAZODONE HCL [Concomitant]
  11. VITAMIN E [Concomitant]
  12. CHLORPHENIRAMINE/PSEUDOEPHEDRINE SR [Concomitant]
  13. ASCORBIC ACID [Concomitant]
  14. FLUNISOLIDE [Concomitant]

REACTIONS (2)
  - EOSINOPHIL COUNT INCREASED [None]
  - NEUTROPENIA [None]
